FAERS Safety Report 10687604 (Version 1)
Quarter: 2015Q1

REPORT INFORMATION
  Report Type: Spontaneous
  Country: IT (occurrence: IT)
  Receive Date: 20150102
  Receipt Date: 20150102
  Transmission Date: 20150720
  Serious: Yes (Other)
  Sender: FDA-Public Use
  Company Number: IT-BRISTOL-MYERS SQUIBB COMPANY-BMS-2014-003791

PATIENT

DRUGS (6)
  1. METHOTREXATE [Concomitant]
     Active Substance: METHOTREXATE
  2. BRUFEN                             /00109201/ [Concomitant]
     Active Substance: IBUPROFEN
  3. ADRONAT [Concomitant]
     Active Substance: ALENDRONATE SODIUM
  4. ORENCIA [Suspect]
     Active Substance: ABATACEPT
     Indication: RHEUMATOID ARTHRITIS
     Dosage: 750 MG, QMO
     Route: 042
  5. FOLIN                              /00024201/ [Concomitant]
  6. DELTACORTENE [Concomitant]
     Active Substance: PREDNISONE

REACTIONS (1)
  - Hepatitis B virus test positive [Unknown]

NARRATIVE: CASE EVENT DATE: 20141119
